FAERS Safety Report 4824754-5 (Version None)
Quarter: 2005Q4

REPORT INFORMATION
  Report Type: 
  Country: None (occurrence: None)
  Receive Date: 20051110
  Receipt Date: 20051107
  Transmission Date: 20060501
  Serious: Yes (Hospitalization)
  Sender: FDA-Public Use
  Company Number: US-AVENTIS-200519773GDDC

PATIENT
  Age: 68 Year
  Sex: Female

DRUGS (5)
  1. TAXOTERE [Suspect]
     Indication: NON-SMALL CELL LUNG CANCER
     Route: 042
     Dates: start: 20050601, end: 20050601
  2. SINEMET [Concomitant]
     Indication: PARKINSON'S DISEASE
     Dosage: DOSE: 50/200 MG
     Dates: start: 19920301
  3. TOLMETIN SODIUM [Concomitant]
     Indication: PARKINSON'S DISEASE
     Dates: start: 19920301
  4. DARVOCET-N 100 [Concomitant]
     Indication: PAIN
     Dosage: DOSE: 1-2
     Dates: start: 19920301
  5. DEXAMETHASONE [Concomitant]
     Dates: start: 20050601

REACTIONS (4)
  - ASTHENIA [None]
  - DEHYDRATION [None]
  - FALL [None]
  - FATIGUE [None]
